FAERS Safety Report 10112359 (Version 2)
Quarter: 2015Q1

REPORT INFORMATION
  Report Type: Report from Study
  Country: CA (occurrence: CA)
  Receive Date: 20140425
  Receipt Date: 20150323
  Transmission Date: 20150720
  Serious: Yes (Hospitalization, Other)
  Sender: FDA-Public Use
  Company Number: CA-ABBVIE-14P-028-1226997-00

PATIENT
  Age: 71 Year
  Sex: Male
  Weight: 74.91 kg

DRUGS (2)
  1. HUMIRA [Suspect]
     Active Substance: ADALIMUMAB
     Indication: CROHN^S DISEASE
     Route: 058
     Dates: start: 20100303
  2. IMODIUM [Concomitant]
     Active Substance: LOPERAMIDE HYDROCHLORIDE
     Indication: CROHN^S DISEASE
     Dosage: 5-6 TABLETS
     Route: 048
     Dates: start: 1994

REACTIONS (10)
  - Prostatic operation [Unknown]
  - Gait disturbance [Not Recovered/Not Resolved]
  - Crohn^s disease [Unknown]
  - Asthenia [Not Recovered/Not Resolved]
  - Crohn^s disease [Unknown]
  - Pain in extremity [Not Recovered/Not Resolved]
  - Crohn^s disease [Unknown]
  - Hernia [Unknown]
  - Gastrointestinal disorder [Recovered/Resolved]
  - Frequent bowel movements [Not Recovered/Not Resolved]

NARRATIVE: CASE EVENT DATE: 2010
